FAERS Safety Report 8184922-4 (Version None)
Quarter: 2012Q1

REPORT INFORMATION
  Report Type: 
  Country: None (occurrence: None)
  Receive Date: 20120305
  Receipt Date: 20120229
  Transmission Date: 20120608
  Serious: Yes (Death)
  Sender: FDA-Public Use
  Company Number: US-GLAXOSMITHKLINE-A0967073A

PATIENT
  Age: 81 Year
  Sex: Female

DRUGS (2)
  1. SEREVENT [Suspect]
     Indication: ASTHMA
     Dosage: 50MCG UNKNOWN
     Route: 055
     Dates: start: 20060908, end: 20120215
  2. FLOVENT [Suspect]
     Indication: ASTHMA
     Dosage: 220MCG UNKNOWN
     Route: 065
     Dates: start: 20060908, end: 20120215

REACTIONS (1)
  - DEATH [None]
